FAERS Safety Report 4687012-8 (Version None)
Quarter: 2005Q2

REPORT INFORMATION
  Report Type: 
  Country: None (occurrence: None)
  Receive Date: 20050606
  Receipt Date: 20050524
  Transmission Date: 20051028
  Serious: Yes (Other)
  Sender: FDA-Public Use
  Company Number: 2005079293

PATIENT
  Sex: Female
  Weight: 63.5036 kg

DRUGS (13)
  1. CELEBREX [Suspect]
     Indication: PAIN IN EXTREMITY
     Dosage: 200 MG (200 MG, 1 IN 1 D), ORAL
     Route: 048
  2. DULOXETINE HYDROCHLORIDE (DULOXETINE HYDROCHLORIDE) [Suspect]
     Indication: ILL-DEFINED DISORDER
     Dates: end: 20050524
  3. VITAMINS (VITAMINS) [Concomitant]
  4. VITAMIN B6 (VITAMIN B6) [Concomitant]
  5. VITAMIN B12 (VITAMIN B12) [Concomitant]
  6. FOLIC ACID [Concomitant]
  7. VITAMIN C (VITAMIN C) [Concomitant]
  8. ALL OTHER THERAPEUTIC PRODUCTS (ALL OTHER THERAPEUTIC PRODUCTS) [Concomitant]
  9. COENZYME Q10 [Concomitant]
  10. AMBIEN [Concomitant]
  11. SINGULAIR ^MERCK^ (MONTELUKAST SODIUM) [Concomitant]
  12. ADVAIR (FLUTICASONE PROPIONATE , SALMETEROL XINAFOATE) [Concomitant]
  13. LEXAPRO [Concomitant]

REACTIONS (5)
  - ARTHRALGIA [None]
  - NASOPHARYNGITIS [None]
  - NECK PAIN [None]
  - PAIN IN EXTREMITY [None]
  - SHOULDER PAIN [None]
